FAERS Safety Report 24673411 (Version 3)
Quarter: 2025Q1

REPORT INFORMATION
  Report Type: Report from Study
  Country: US (occurrence: US)
  Receive Date: 20241128
  Receipt Date: 20250319
  Transmission Date: 20250408
  Serious: Yes (Other)
  Sender: JOHNSON AND JOHNSON
  Company Number: US-JNJFOC-20240339602

PATIENT
  Age: 71 Year
  Sex: Female

DRUGS (12)
  1. DARZALEX FASPRO [Suspect]
     Active Substance: DARATUMUMAB\HYALURONIDASE-FIHJ
     Indication: Plasma cell myeloma
     Route: 058
     Dates: start: 20240305
  2. REVLIMID [Suspect]
     Active Substance: LENALIDOMIDE
     Indication: Plasma cell myeloma
     Route: 048
     Dates: start: 20240305
  3. VELCADE [Suspect]
     Active Substance: BORTEZOMIB
     Indication: Plasma cell myeloma
     Route: 058
     Dates: start: 20241001
  4. ZOLOFT [Concomitant]
     Active Substance: SERTRALINE HYDROCHLORIDE
     Indication: Depression
     Route: 048
  5. DEXAMETHASONE [Concomitant]
     Active Substance: DEXAMETHASONE
     Indication: Plasma cell myeloma
     Route: 048
  6. DEXAMETHASONE [Concomitant]
     Active Substance: DEXAMETHASONE
     Route: 048
  7. TYLENOL [Concomitant]
     Active Substance: ACETAMINOPHEN
     Indication: Premedication
     Route: 048
  8. SINGULAIR [Concomitant]
     Active Substance: MONTELUKAST SODIUM
     Indication: Premedication
     Route: 065
  9. BOTOX [Concomitant]
     Active Substance: ONABOTULINUMTOXINA
  10. CLARITIN [Concomitant]
     Active Substance: LORATADINE
     Indication: Premedication
     Route: 065
  11. ACYCLOVIR [Concomitant]
     Active Substance: ACYCLOVIR
     Indication: Prophylaxis
  12. REVLIMID [Concomitant]
     Active Substance: LENALIDOMIDE
     Indication: Plasma cell myeloma
     Route: 048

REACTIONS (29)
  - Paranasal sinus abscess [Not Recovered/Not Resolved]
  - Cerebrovascular accident [Unknown]
  - Vitreous detachment [Recovering/Resolving]
  - Vitreous detachment [Recovering/Resolving]
  - Sneezing [Recovered/Resolved with Sequelae]
  - Dry mouth [Not Recovered/Not Resolved]
  - Back pain [Recovered/Resolved]
  - Abdominal pain [Recovered/Resolved]
  - Migraine [Recovered/Resolved with Sequelae]
  - Pain of skin [Not Recovered/Not Resolved]
  - Skin disorder [Recovering/Resolving]
  - Pain [Recovered/Resolved]
  - Dyspepsia [Not Recovered/Not Resolved]
  - Viral rash [Not Recovered/Not Resolved]
  - Hot flush [Recovered/Resolved]
  - Sluggishness [Unknown]
  - Rash [Recovering/Resolving]
  - Tinnitus [Recovered/Resolved with Sequelae]
  - Nausea [Recovered/Resolved with Sequelae]
  - Headache [Recovered/Resolved with Sequelae]
  - Pruritus [Recovered/Resolved]
  - Herpes zoster [Unknown]
  - Urticaria [Unknown]
  - Hair disorder [Unknown]
  - Fatigue [Not Recovered/Not Resolved]
  - Facial pain [Unknown]
  - Insomnia [Unknown]
  - Ear discomfort [Unknown]
  - Dizziness [Recovered/Resolved]

NARRATIVE: CASE EVENT DATE: 20240305
